FAERS Safety Report 4901773-1 (Version None)
Quarter: 2006Q1

REPORT INFORMATION
  Report Type: 
  Country: None (occurrence: None)
  Receive Date: 20060203
  Receipt Date: 20060203
  Transmission Date: 20060701
  Serious: Yes (Other)
  Sender: FDA-Public Use
  Company Number: None

PATIENT
  Age: 73 Year
  Sex: Female
  Weight: 81.6475 kg

DRUGS (1)
  1. PULMICORT RESPULES [Suspect]
     Indication: CHRONIC OBSTRUCTIVE PULMONARY DISEASE
     Dosage: 1 AMPULE   TWICE A DAY   INHAL
     Route: 055
     Dates: start: 20051118, end: 20051228

REACTIONS (3)
  - ACARODERMATITIS [None]
  - ECZEMA [None]
  - RASH [None]
